FAERS Safety Report 22147587 (Version 1)
Quarter: 2023Q1

REPORT INFORMATION
  Report Type: Spontaneous
  Country: US (occurrence: None)
  Receive Date: 20230327
  Receipt Date: 20230327
  Transmission Date: 20230417
  Serious: No
  Sender: FDA-Public Use
  Company Number: None

PATIENT
  Sex: Female

DRUGS (1)
  1. SKYRIZI [Suspect]
     Active Substance: RISANKIZUMAB-RZAA
     Indication: Psoriasis
     Dosage: OTHER FREQUENCY : EVERY 12 WEEKS;?
     Route: 058
     Dates: start: 202205

REACTIONS (9)
  - Drug ineffective [None]
  - Pruritus [None]
  - Pain [None]
  - Psoriasis [None]
  - Erythema [None]
  - Pruritus [None]
  - Scab [None]
  - Dry skin [None]
  - Skin weeping [None]
